FAERS Safety Report 6894253-8 (Version None)
Quarter: 2010Q3

REPORT INFORMATION
  Report Type: 
  Country: None (occurrence: None)
  Receive Date: 20100728
  Receipt Date: 20100720
  Transmission Date: 20110219
  Serious: Yes (Hospitalization, Other)
  Sender: FDA-Public Use
  Company Number: 000940

PATIENT
  Sex: Female
  Weight: 53 kg

DRUGS (6)
  1. NEUPRO [Suspect]
     Indication: PARKINSON'S DISEASE
     Dosage: (2MG QD TRANSDERMAL), (4 MG QD TRANSDERMAL), (6 MG QD TRANSDERMAL), (8 MG QD TRANSDERMAL)
     Route: 062
     Dates: start: 20080717, end: 20080724
  2. NEUPRO [Suspect]
     Indication: PARKINSON'S DISEASE
     Dosage: (2MG QD TRANSDERMAL), (4 MG QD TRANSDERMAL), (6 MG QD TRANSDERMAL), (8 MG QD TRANSDERMAL)
     Route: 062
     Dates: start: 20080725, end: 20080802
  3. NEUPRO [Suspect]
     Indication: PARKINSON'S DISEASE
     Dosage: (2MG QD TRANSDERMAL), (4 MG QD TRANSDERMAL), (6 MG QD TRANSDERMAL), (8 MG QD TRANSDERMAL)
     Route: 062
     Dates: start: 20080803, end: 20080815
  4. NEUPRO [Suspect]
     Indication: PARKINSON'S DISEASE
     Dosage: (2MG QD TRANSDERMAL), (4 MG QD TRANSDERMAL), (6 MG QD TRANSDERMAL), (8 MG QD TRANSDERMAL)
     Route: 062
     Dates: start: 20080816
  5. SIMVASTIN-MEPHA [Concomitant]
  6. ASPIRIN [Concomitant]

REACTIONS (1)
  - UPPER LIMB FRACTURE [None]
